FAERS Safety Report 20559100 (Version 2)
Quarter: 2022Q3

REPORT INFORMATION
  Report Type: Report from Study
  Country: US (occurrence: US)
  Receive Date: 20220307
  Receipt Date: 20220930
  Transmission Date: 20221027
  Serious: No
  Sender: FDA-Public Use
  Company Number: US-SA-SAC20220302000030

PATIENT
  Age: 60 Year
  Sex: Male

DRUGS (6)
  1. DUPIXENT [Suspect]
     Active Substance: DUPILUMAB
     Indication: Chronic rhinosinusitis with nasal polyps
     Dosage: 300 MG, QOW
     Route: 058
     Dates: start: 20220216, end: 2022
  2. ASPIRIN [Concomitant]
     Active Substance: ASPIRIN
  3. FAMOTIDINE [Concomitant]
     Active Substance: FAMOTIDINE
  4. ROSUVASTATIN CALCIUM [Concomitant]
     Active Substance: ROSUVASTATIN CALCIUM
  5. METOPROLOL SUCCINATE [Concomitant]
     Active Substance: METOPROLOL SUCCINATE
  6. AMLODIPINE BESYLATE [Concomitant]
     Active Substance: AMLODIPINE BESYLATE

REACTIONS (18)
  - Malaise [Unknown]
  - Influenza like illness [Unknown]
  - Drainage [Unknown]
  - Lethargy [Recovered/Resolved]
  - Fatigue [Recovered/Resolved]
  - Nausea [Unknown]
  - Dysphonia [Unknown]
  - Headache [Unknown]
  - Sinusitis [Unknown]
  - Condition aggravated [Unknown]
  - Rhinorrhoea [Recovered/Resolved]
  - Abdominal pain upper [Recovered/Resolved]
  - Diarrhoea [Recovered/Resolved]
  - Formication [Recovered/Resolved]
  - Hot flush [Recovered/Resolved]
  - Anxiety [Recovered/Resolved]
  - COVID-19 [Recovered/Resolved]
  - Nasal operation [Recovered/Resolved]

NARRATIVE: CASE EVENT DATE: 20220101
